FAERS Safety Report 7091127-7 (Version None)
Quarter: 2010Q4

REPORT INFORMATION
  Report Type: 
  Country: None (occurrence: None)
  Receive Date: 20101109
  Receipt Date: 20101028
  Transmission Date: 20110411
  Serious: Yes (Other)
  Sender: FDA-Public Use
  Company Number: JP-ROCHE-707940

PATIENT
  Sex: Female
  Weight: 71 kg

DRUGS (36)
  1. TOCILIZUMAB [Suspect]
     Indication: RHEUMATOID ARTHRITIS
     Route: 041
     Dates: start: 20080728, end: 20080728
  2. TOCILIZUMAB [Suspect]
     Route: 041
     Dates: start: 20080825, end: 20080825
  3. TOCILIZUMAB [Suspect]
     Route: 041
     Dates: start: 20080919, end: 20080919
  4. TOCILIZUMAB [Suspect]
     Route: 041
     Dates: start: 20081020, end: 20081020
  5. TOCILIZUMAB [Suspect]
     Route: 041
     Dates: start: 20081117, end: 20081117
  6. TOCILIZUMAB [Suspect]
     Route: 041
     Dates: start: 20081215, end: 20081215
  7. TOCILIZUMAB [Suspect]
     Route: 041
     Dates: start: 20090119, end: 20090119
  8. TOCILIZUMAB [Suspect]
     Route: 041
     Dates: start: 20090216, end: 20090216
  9. TOCILIZUMAB [Suspect]
     Route: 041
     Dates: start: 20090316, end: 20090316
  10. TOCILIZUMAB [Suspect]
     Route: 041
     Dates: start: 20090413, end: 20090413
  11. TOCILIZUMAB [Suspect]
     Route: 041
     Dates: start: 20090511, end: 20090511
  12. TOCILIZUMAB [Suspect]
     Route: 041
     Dates: start: 20090608, end: 20090608
  13. TOCILIZUMAB [Suspect]
     Route: 041
     Dates: start: 20090706, end: 20090706
  14. TOCILIZUMAB [Suspect]
     Dosage: DISCONTINUED.
     Route: 041
     Dates: start: 20090803, end: 20090803
  15. REMICADE [Suspect]
     Indication: RHEUMATOID ARTHRITIS
     Route: 041
     Dates: start: 20041007, end: 20080204
  16. METHOTREXATE [Suspect]
     Indication: RHEUMATOID ARTHRITIS
     Route: 048
     Dates: end: 20090801
  17. PREDNISOLONE [Concomitant]
     Route: 048
     Dates: start: 20080526, end: 20080721
  18. PREDNISOLONE [Concomitant]
     Route: 048
     Dates: start: 20080722, end: 20080825
  19. PREDNISOLONE [Concomitant]
     Route: 048
     Dates: start: 20090911
  20. SIMVASTATIN [Concomitant]
     Route: 048
  21. BENET [Concomitant]
     Route: 048
  22. LOXOPROFEN SODIUM [Concomitant]
     Route: 048
  23. LOXOPROFEN SODIUM [Concomitant]
     Dosage: FORM:PERORAL AGENT.
     Route: 048
  24. GASTER D [Concomitant]
     Route: 048
  25. ALFAROL [Concomitant]
     Dosage: PERORAL AGENT
     Route: 048
  26. MYSLEE [Concomitant]
     Dosage: FORM:PERORAL AGENT.
     Route: 048
  27. FAMOTIDINE [Concomitant]
     Dosage: FORM:PERORAL AGENT.
     Route: 048
     Dates: end: 20090905
  28. NAIXAN [Concomitant]
     Dosage: FORM:PERORAL AGENT
     Route: 048
     Dates: start: 20090906
  29. TAKEPRON [Concomitant]
     Route: 048
     Dates: start: 20090906, end: 20091110
  30. ZYLORIC [Concomitant]
     Route: 048
     Dates: start: 20090909
  31. ACINON [Concomitant]
     Dosage: FORM:PERORAL AGENT.
     Route: 048
     Dates: start: 20091111
  32. MYCOSYST [Concomitant]
     Route: 048
     Dates: start: 20090911
  33. BAKTAR [Concomitant]
     Dosage: FORM:PERORAL AGENT.
     Route: 048
     Dates: start: 20090911
  34. PROCARBAZINE HYDROCHLORIDE [Concomitant]
     Dosage: FORM:PERORAL AGENT.
     Route: 048
     Dates: start: 20091114, end: 20091121
  35. AVELOX [Concomitant]
     Dosage: FORM:PERORAL AGENT.
     Route: 048
  36. MEROPEN [Concomitant]
     Route: 042
     Dates: start: 20090901, end: 20090905

REACTIONS (1)
  - HODGKIN'S DISEASE STAGE IV [None]
